FAERS Safety Report 7850577-9 (Version None)
Quarter: 2011Q4

REPORT INFORMATION
  Report Type: 
  Country: None (occurrence: None)
  Receive Date: 20111024
  Receipt Date: 20111014
  Transmission Date: 20120403
  Serious: Yes (Other)
  Sender: FDA-Public Use
  Company Number: 1034096

PATIENT
  Age: 74 Year
  Sex: Female

DRUGS (5)
  1. (ANTRA   /00661201/) [Concomitant]
  2. PREDNISONE [Concomitant]
  3. IRINOTECAN HCL [Suspect]
     Indication: RECTAL CANCER
     Dosage: 85 MG, CYCLIC,   , INTRAVENOUS
     Route: 042
     Dates: start: 20110526, end: 20110714
  4. ERBITUX [Suspect]
     Indication: RECTAL CANCER
     Dosage: 340 MG, CYCLIC,   , INTRAVENOUS
     Route: 042
     Dates: start: 20110526, end: 20110714
  5. NEBIVOLOL HCL [Concomitant]

REACTIONS (2)
  - DYSENTERY [None]
  - DECREASED APPETITE [None]
